FAERS Safety Report 15570559 (Version 3)
Quarter: 2018Q4

REPORT INFORMATION
  Report Type: Spontaneous
  Country: JP (occurrence: JP)
  Receive Date: 20181031
  Receipt Date: 20181102
  Transmission Date: 20190205
  Serious: Yes (Hospitalization, Other)
  Sender: FDA-Public Use
  Company Number: JP-009507513-1810JPN013062

PATIENT
  Age: 61 Year
  Sex: Female

DRUGS (3)
  1. SITAGLIPTIN PHOSPHATE [Suspect]
     Active Substance: SITAGLIPTIN PHOSPHATE
     Indication: TYPE 2 DIABETES MELLITUS
     Dosage: 50 MILLIGRAM, UNK
     Route: 048
  2. METFORMIN HYDROCHLORIDE. [Suspect]
     Active Substance: METFORMIN HYDROCHLORIDE
     Indication: ACROMEGALY
     Dosage: 500 MILLIGRAM, UNK
     Route: 065
  3. PASIREOTIDE. [Concomitant]
     Active Substance: PASIREOTIDE
     Dosage: UNK
     Dates: start: 2014

REACTIONS (1)
  - Diabetes mellitus [Unknown]
